FAERS Safety Report 8256609-0 (Version None)
Quarter: 2012Q2

REPORT INFORMATION
  Report Type: 
  Country: None (occurrence: None)
  Receive Date: 20120403
  Receipt Date: 20120330
  Transmission Date: 20120825
  Serious: Yes (Other)
  Sender: FDA-Public Use
  Company Number: CR-ABBOTT-12P-039-0920382-00

PATIENT
  Age: 22 Year
  Sex: Female

DRUGS (2)
  1. EPIVAL ER [Suspect]
     Indication: PROPHYLAXIS
  2. EPIVAL ER [Suspect]
     Indication: MIGRAINE
     Dosage: 1TAB QHS
     Route: 048
     Dates: start: 20120130

REACTIONS (2)
  - LOSS OF CONSCIOUSNESS [None]
  - AMNESIA [None]
